FAERS Safety Report 9507268 (Version 2)
Quarter: 2013Q4

REPORT INFORMATION
  Report Type: Spontaneous
  Country: US (occurrence: US)
  Receive Date: 20130909
  Receipt Date: 20131009
  Transmission Date: 20140711
  Serious: Yes (Hospitalization, Other)
  Sender: FDA-Public Use
  Company Number: US-TEVA-430325USA

PATIENT
  Age: 66 Year
  Sex: Male

DRUGS (3)
  1. LEVETIRACETAM [Suspect]
     Indication: CONVULSION
     Route: 065
  2. LEVETIRACETAM [Suspect]
     Indication: CONVULSION
     Route: 065
  3. INSULIN [Suspect]
     Indication: OVERDOSE

REACTIONS (8)
  - Suicide attempt [Unknown]
  - Intentional overdose [Unknown]
  - Major depression [Unknown]
  - Convulsion [Unknown]
  - Blood creatine phosphokinase increased [Unknown]
  - Hyperglycaemia [Unknown]
  - Hypocalcaemia [Unknown]
  - Treatment noncompliance [Unknown]
